FAERS Safety Report 7803079-X (Version None)
Quarter: 2011Q4

REPORT INFORMATION
  Report Type: 
  Country: None (occurrence: None)
  Receive Date: 20111007
  Receipt Date: 20111003
  Transmission Date: 20120403
  Serious: Yes (Other)
  Sender: FDA-Public Use
  Company Number: US-PFIZER INC-2011235938

PATIENT
  Sex: Female
  Weight: 73.469 kg

DRUGS (1)
  1. LYRICA [Suspect]
     Indication: FIBROMYALGIA
     Dosage: 75 MG, 3X/DAY
     Route: 048
     Dates: end: 20110401

REACTIONS (8)
  - HEART RATE INCREASED [None]
  - ARTHRALGIA [None]
  - NECK PAIN [None]
  - BACK PAIN [None]
  - HEADACHE [None]
  - MOOD ALTERED [None]
  - GALLBLADDER DISORDER [None]
  - GASTROOESOPHAGEAL REFLUX DISEASE [None]
